FAERS Safety Report 16038576 (Version 2)
Quarter: 2019Q3

REPORT INFORMATION
  Report Type: Spontaneous
  Country: US (occurrence: US)
  Receive Date: 20190305
  Receipt Date: 20190913
  Transmission Date: 20191004
  Serious: Yes (Life-Threatening, Hospitalization, Other)
  Sender: FDA-Public Use
  Company Number: US-BAXTER-2019BAX004222

PATIENT
  Age: 5 Decade
  Sex: Female

DRUGS (2)
  1. ONDANSETRON INJECTION, USP-SINGLE DOSE [Suspect]
     Active Substance: ONDANSETRON
     Indication: PRODUCT USED FOR UNKNOWN INDICATION
     Route: 030
  2. ONDANSETRON [Suspect]
     Active Substance: ONDANSETRON
     Indication: PRODUCT USED FOR UNKNOWN INDICATION
     Dosage: TOOK 3 OVER THE COURSE OF 2 DAYS
     Route: 065

REACTIONS (7)
  - Ventricular fibrillation [Recovered/Resolved]
  - Ventricular extrasystoles [Recovered/Resolved]
  - Long QT syndrome [Recovered/Resolved]
  - Sinus rhythm [Recovered/Resolved]
  - Torsade de pointes [Recovered/Resolved]
  - Ventricular tachycardia [Recovered/Resolved]
  - Electrocardiogram QRS complex [Recovered/Resolved]
